FAERS Safety Report 6672676-X (Version None)
Quarter: 2010Q2

REPORT INFORMATION
  Report Type: 
  Country: None (occurrence: None)
  Receive Date: 20100408
  Receipt Date: 20100330
  Transmission Date: 20101027
  Serious: Yes (Other)
  Sender: FDA-Public Use
  Company Number: US-ASTRAZENECA-2009SE33505

PATIENT
  Age: 726 Month
  Sex: Female
  Weight: 130.5 kg

DRUGS (2)
  1. ARIMIDEX [Suspect]
     Indication: BREAST CANCER
     Route: 048
     Dates: start: 20040401, end: 20090101
  2. SYMBICORT [Concomitant]

REACTIONS (1)
  - RECURRENT CANCER [None]
